FAERS Safety Report 16609231 (Version 1)
Quarter: 2019Q3

REPORT INFORMATION
  Report Type: Spontaneous
  Country: US (occurrence: US)
  Receive Date: 20190720
  Receipt Date: 20190720
  Transmission Date: 20191004
  Serious: No
  Sender: FDA-Public Use
  Company Number: None

PATIENT
  Age: 52 Year
  Sex: Female
  Weight: 58.5 kg

DRUGS (2)
  1. CETIRIZINE [Concomitant]
     Active Substance: CETIRIZINE HYDROCHLORIDE
  2. HYDROXYCHLORIQUINE 200M GENERIC FOR PLAQUEN L [Suspect]
     Active Substance: HYDROXYCHLOROQUINE
     Indication: SJOGREN^S SYNDROME
     Dosage: ?          QUANTITY:2 TABLET(S);?
     Route: 048
     Dates: start: 20190301

REACTIONS (6)
  - Product prescribing issue [None]
  - Exaggerated startle response [None]
  - Anxiety [None]
  - Panic attack [None]
  - Palpitations [None]
  - Incorrect dose administered [None]

NARRATIVE: CASE EVENT DATE: 20190318
